FAERS Safety Report 9924414 (Version 1)
Quarter: 2014Q1

REPORT INFORMATION
  Report Type: Spontaneous
  Country: US (occurrence: None)
  Receive Date: 20140220
  Receipt Date: 20140220
  Transmission Date: 20141002
  Serious: Yes (Life-Threatening, Hospitalization)
  Sender: FDA-Public Use
  Company Number: AUR-APL-2014-01761

PATIENT
  Age: 40 Year
  Sex: Male

DRUGS (9)
  1. AMLODIPINE (AMLODIPINE) [Suspect]
     Indication: PRODUCT USED FOR UNKNOWN INDICATION
     Route: 048
  2. FLUOXETINE [Suspect]
     Indication: PRODUCT USED FOR UNKNOWN INDICATION
     Route: 048
  3. METFORMIN (METFORMIN) [Suspect]
     Indication: PRODUCT USED FOR UNKNOWN INDICATION
  4. OXYCODONE [Suspect]
     Indication: PRODUCT USED FOR UNKNOWN INDICATION
     Route: 048
  5. SIMVASTATIN [Suspect]
     Indication: PRODUCT USED FOR UNKNOWN INDICATION
     Route: 048
  6. CARBAMAZEPINE [Suspect]
     Indication: PRODUCT USED FOR UNKNOWN INDICATION
     Route: 048
  7. TRAZODONE (TRAZODONE) [Suspect]
     Indication: PRODUCT USED FOR UNKNOWN INDICATION
     Route: 048
  8. VERAPAMIL HCL [Suspect]
     Indication: PRODUCT USED FOR UNKNOWN INDICATION
     Route: 048
  9. VALSARTAN [Suspect]
     Indication: PRODUCT USED FOR UNKNOWN INDICATION
     Route: 048

REACTIONS (19)
  - Suicide attempt [None]
  - Loss of consciousness [None]
  - Toxicity to various agents [None]
  - Hypotension [None]
  - Lethargy [None]
  - Respiratory distress [None]
  - Depressed level of consciousness [None]
  - Hyperglycaemia [None]
  - Renal failure acute [None]
  - Anion gap [None]
  - Metabolic acidosis [None]
  - Atrioventricular block first degree [None]
  - Acute myocardial infarction [None]
  - Pulmonary oedema [None]
  - Drug withdrawal syndrome [None]
  - Pneumonia aspiration [None]
  - Acute respiratory distress syndrome [None]
  - Overdose [None]
  - Alcohol withdrawal syndrome [None]
